FAERS Safety Report 9322405 (Version 1)
Quarter: 2013Q2

REPORT INFORMATION
  Report Type: Spontaneous
  Country: US (occurrence: US)
  Receive Date: 20130531
  Receipt Date: 20130531
  Transmission Date: 20140414
  Serious: Yes (Death)
  Sender: FDA-Public Use
  Company Number: CHPA2013US009166

PATIENT
  Sex: Male

DRUGS (2)
  1. MAALOX ANTACID/ANTIGAS MAX QDTABS ASST [Suspect]
     Indication: ULCER HAEMORRHAGE
     Dosage: UNK, UNK
     Route: 048
     Dates: start: 1960
  2. TAGAMET [Concomitant]
     Indication: ULCER
     Dosage: UNK

REACTIONS (3)
  - Colon cancer [Fatal]
  - Therapeutic response unexpected [Unknown]
  - Off label use [Unknown]
